FAERS Safety Report 8558663-5 (Version None)
Quarter: 2012Q3

REPORT INFORMATION
  Report Type: 
  Country: None (occurrence: None)
  Receive Date: 20120801
  Receipt Date: 20120731
  Transmission Date: 20120928
  Serious: Yes (Hospitalization)
  Sender: FDA-Public Use
  Company Number: IT-BAYER-2012-076612

PATIENT
  Age: 73 Year
  Sex: Male

DRUGS (6)
  1. CRESTOR [Concomitant]
     Indication: HYPERCHOLESTEROLAEMIA
     Dosage: DAILY DOSE 10 MG
     Route: 048
     Dates: start: 20120101, end: 20120614
  2. PLAVIX [Suspect]
     Indication: ANTICOAGULANT THERAPY
     Dosage: DAILY DOSE 75 MG
     Route: 048
     Dates: start: 20120101, end: 20120614
  3. ASPIRIN [Suspect]
     Dosage: 100 MG, QD
     Route: 048
     Dates: start: 20120101, end: 20120614
  4. CIPROFLOXACIN [Concomitant]
     Indication: ANTIBIOTIC THERAPY
     Dosage: DAILY DOSE 500 MG
     Route: 048
     Dates: start: 20120610, end: 20120614
  5. NEBIVOLOL HCL [Concomitant]
     Indication: HYPERTENSION
     Dosage: DAILY DOSE 5 MG
     Route: 048
     Dates: start: 20120101, end: 20120614
  6. TEVETENS [Concomitant]
     Indication: HYPERTENSION
     Dosage: DAILY DOSE 600 MG
     Route: 048
     Dates: start: 20120601, end: 20120614

REACTIONS (3)
  - DYSURIA [None]
  - HAEMORRHAGE URINARY TRACT [None]
  - HAEMATURIA [None]
